FAERS Safety Report 18660094 (Version 1)
Quarter: 2020Q4

REPORT INFORMATION
  Report Type: Spontaneous
  Country: US (occurrence: US)
  Receive Date: 20201223
  Receipt Date: 20201223
  Transmission Date: 20210114
  Serious: Yes (Death)
  Sender: FDA-Public Use
  Company Number: None

PATIENT
  Age: 63 Year
  Sex: Female

DRUGS (1)
  1. DOCETAXEL SDV 80MG/4ML [Suspect]
     Active Substance: DOCETAXEL
     Route: 042
     Dates: start: 20201106, end: 20201123

REACTIONS (1)
  - Death [None]

NARRATIVE: CASE EVENT DATE: 20201123
